FAERS Safety Report 21004708 (Version 1)
Quarter: 2022Q2

REPORT INFORMATION
  Report Type: Report from Study
  Country: PK (occurrence: PK)
  Receive Date: 20220624
  Receipt Date: 20220624
  Transmission Date: 20220721
  Serious: Yes (Death)
  Sender: FDA-Public Use
  Company Number: PK-002147023-NVSC2022PK137889

PATIENT

DRUGS (1)
  1. RUXOLITINIB [Suspect]
     Active Substance: RUXOLITINIB
     Indication: Myelofibrosis
     Dosage: 10 MG, BID (4 TABLETS OF 5 MG DAILY)
     Route: 048
     Dates: start: 20190905, end: 20200606

REACTIONS (1)
  - Death [Fatal]
